FAERS Safety Report 19686527 (Version 3)
Quarter: 2021Q3

REPORT INFORMATION
  Report Type: Report from Study
  Country: KE (occurrence: KE)
  Receive Date: 20210811
  Receipt Date: 20210920
  Transmission Date: 20211014
  Serious: Yes (Death, Hospitalization, Other)
  Sender: FDA-Public Use
  Company Number: KE-SEATTLE GENETICS-2021SGN04160

PATIENT
  Sex: Male

DRUGS (1)
  1. BRENTUXIMAB VEDOTIN [Suspect]
     Active Substance: BRENTUXIMAB VEDOTIN
     Indication: HODGKIN^S DISEASE STAGE IV
     Dosage: 98.4 MILLIGRAM
     Route: 042
     Dates: start: 20210524

REACTIONS (6)
  - Illness [Not Recovered/Not Resolved]
  - Fatigue [Unknown]
  - Cough [Unknown]
  - Death [Fatal]
  - Chest discomfort [Not Recovered/Not Resolved]
  - Gait inability [Unknown]
